FAERS Safety Report 4339768-1 (Version None)
Quarter: 2004Q2

REPORT INFORMATION
  Report Type: 
  Country: None (occurrence: None)
  Receive Date: 20040416
  Receipt Date: 20040225
  Transmission Date: 20050107
  Serious: Yes (Other)
  Sender: FDA-Public Use
  Company Number: PHBS2004BR02727

PATIENT
  Age: 58 Year
  Sex: Female
  Weight: 62 kg

DRUGS (4)
  1. PARLODEL [Suspect]
     Indication: HYPERPROLACTINAEMIA
     Dosage: 1.25 MG, UNK
     Route: 048
     Dates: start: 19790101
  2. MONOCORDIL [Concomitant]
     Indication: ANGINA PECTORIS
     Dosage: 1 TABLET/8 HOURS
     Route: 048
     Dates: start: 20040212
  3. ISORDIL [Concomitant]
     Indication: ANGINA PECTORIS
     Route: 060
     Dates: start: 20040201
  4. BUFERIN [Concomitant]
     Dosage: 1 TABLET AFTER LUNCH
     Route: 048
     Dates: start: 20040201

REACTIONS (3)
  - ANGINA PECTORIS [None]
  - CONDITION AGGRAVATED [None]
  - PULMONARY FIBROSIS [None]
